FAERS Safety Report 12706106 (Version 2)
Quarter: 2016Q3

REPORT INFORMATION
  Report Type: Spontaneous
  Country: US (occurrence: US)
  Receive Date: 20160901
  Receipt Date: 20160901
  Transmission Date: 20161109
  Serious: No
  Sender: FDA-Public Use
  Company Number: US-JAZZ-2016-US-007969

PATIENT
  Age: 33 Year
  Sex: Female

DRUGS (12)
  1. XYREM [Suspect]
     Active Substance: SODIUM OXYBATE
     Indication: NARCOLEPSY
     Dosage: 2.25 G, BID
     Dates: start: 20160422
  2. CLOBETASOL [Concomitant]
     Active Substance: CLOBETASOL
  3. FEXOFENADINE HCL [Concomitant]
     Active Substance: FEXOFENADINE HYDROCHLORIDE
  4. MULTIVITAMINS [Concomitant]
     Active Substance: VITAMINS
  5. HYDROCHLOROTHIAZIDE. [Concomitant]
     Active Substance: HYDROCHLOROTHIAZIDE
  6. VITAMIN B-1 [Concomitant]
     Active Substance: THIAMINE
  7. TRETINOIN. [Concomitant]
     Active Substance: TRETINOIN
  8. ALLERGY [Concomitant]
     Active Substance: UNSPECIFIED INGREDIENT
  9. KLOR-CON [Concomitant]
     Active Substance: POTASSIUM CHLORIDE
  10. VITAMIN D [Concomitant]
     Active Substance: CHOLECALCIFEROL
  11. IBUPROFEN. [Concomitant]
     Active Substance: IBUPROFEN
  12. PROVIGIL [Concomitant]
     Active Substance: MODAFINIL

REACTIONS (2)
  - Paraesthesia [Not Recovered/Not Resolved]
  - Limb discomfort [Not Recovered/Not Resolved]

NARRATIVE: CASE EVENT DATE: 201604
